FAERS Safety Report 17219344 (Version 1)
Quarter: 2020Q1

REPORT INFORMATION
  Report Type: Spontaneous
  Country: US (occurrence: US)
  Receive Date: 20191230
  Receipt Date: 20191230
  Transmission Date: 20200409
  Serious: No
  Sender: FDA-Public Use
  Company Number: None

PATIENT
  Sex: Female
  Weight: 54 kg

DRUGS (2)
  1. CITALOPRAM HYDROBROMIDE 20MG TABS [Suspect]
     Active Substance: CITALOPRAM HYDROBROMIDE
     Indication: MAJOR DEPRESSION
     Dosage: ?          QUANTITY:1.5 TABLET(S);?
     Route: 048
  2. LILETTA [Concomitant]
     Active Substance: LEVONORGESTREL

REACTIONS (6)
  - Drug withdrawal syndrome [None]
  - Headache [None]
  - Disturbance in attention [None]
  - Decreased appetite [None]
  - Myalgia [None]
  - Hypersomnia [None]
